FAERS Safety Report 5263695-9 (Version None)
Quarter: 2007Q1

REPORT INFORMATION
  Report Type: 
  Country: None (occurrence: None)
  Receive Date: 20070312
  Receipt Date: 20070312
  Transmission Date: 20070707
  Serious: No
  Sender: FDA-Public Use
  Company Number: None

PATIENT
  Sex: Male

DRUGS (1)
  1. OVIDE [Suspect]

REACTIONS (14)
  - CHEST PAIN [None]
  - CONVULSION [None]
  - DIARRHOEA [None]
  - DRUG INEFFECTIVE [None]
  - DRUG TOXICITY [None]
  - DYSPNOEA [None]
  - EPISTAXIS [None]
  - HEADACHE [None]
  - MUSCLE SPASMS [None]
  - MUSCLE TWITCHING [None]
  - STOMACH DISCOMFORT [None]
  - THROAT TIGHTNESS [None]
  - TREMOR [None]
  - VOMITING [None]
